FAERS Safety Report 5995880-2 (Version None)
Quarter: 2008Q4

REPORT INFORMATION
  Report Type: 
  Country: None (occurrence: None)
  Receive Date: 20081212
  Receipt Date: 20081202
  Transmission Date: 20090506
  Serious: Yes (Other)
  Sender: FDA-Public Use
  Company Number: BR-PFIZER INC-2008151259

PATIENT

DRUGS (1)
  1. FRONTAL [Suspect]
     Indication: DEPRESSION
     Dosage: UNK
     Route: 048
     Dates: start: 19930101

REACTIONS (5)
  - DRUG DEPENDENCE [None]
  - FEELING OF DESPAIR [None]
  - INSOMNIA [None]
  - MALAISE [None]
  - PHOBIA [None]
